FAERS Safety Report 22173547 (Version 1)
Quarter: 2023Q2

REPORT INFORMATION
  Report Type: Spontaneous
  Country: US (occurrence: None)
  Receive Date: 20230404
  Receipt Date: 20230404
  Transmission Date: 20230722
  Serious: No
  Sender: FDA-Public Use
  Company Number: None

PATIENT
  Age: 93 Year
  Sex: Female

DRUGS (9)
  1. REPATHA [Suspect]
     Active Substance: EVOLOCUMAB
     Dosage: FREQUENCY: Q2WEEKS
     Route: 058
     Dates: start: 20200117
  2. ELIQUIS [Concomitant]
     Active Substance: APIXABAN
  3. LATANOPROST [Concomitant]
     Active Substance: LATANOPROST
  4. ALEVE [Concomitant]
     Active Substance: NAPROXEN SODIUM
  5. CRANBERRY CAPSULES [Concomitant]
  6. HYDROCHLOROTHIAZIDE [Concomitant]
     Active Substance: HYDROCHLOROTHIAZIDE
  7. LEVOTHYROXINE TABS [Concomitant]
  8. QUINAPRIL [Concomitant]
     Active Substance: QUINAPRIL
  9. TYLENOL E/S (ACETAMINOPHEN) [Concomitant]

REACTIONS (2)
  - Dementia [None]
  - Inappropriate schedule of product administration [None]
